FAERS Safety Report 5952643-1 (Version None)
Quarter: 2008Q4

REPORT INFORMATION
  Report Type: 
  Country: None (occurrence: None)
  Receive Date: 20081029
  Receipt Date: 20080811
  Transmission Date: 20090506
  Serious: Yes (Death, Other)
  Sender: FDA-Public Use
  Company Number: 175815USA

PATIENT
  Age: 64 Year
  Sex: Male

DRUGS (1)
  1. IFOSFAMIDE [Suspect]
     Indication: MANTLE CELL LYMPHOMA
     Dosage: 9.4 GRAM
     Dates: start: 20080716

REACTIONS (2)
  - CONVULSION [None]
  - NEUROTOXICITY [None]
